FAERS Safety Report 19760534 (Version 1)
Quarter: 2021Q3

REPORT INFORMATION
  Report Type: Spontaneous
  Country: JP (occurrence: JP)
  Receive Date: 20210830
  Receipt Date: 20210830
  Transmission Date: 20211014
  Serious: Yes (Hospitalization)
  Sender: FDA-Public Use
  Company Number: JP-AMGEN-JPNSP2021088908

PATIENT
  Age: 7 Decade
  Sex: Female

DRUGS (6)
  1. THYRADIN [Concomitant]
     Active Substance: LEVOTHYROXINE
     Dosage: 25 UG, QD
     Route: 048
  2. KREMEZIN [Concomitant]
     Active Substance: ACTIVATED CHARCOAL
     Indication: CHRONIC KIDNEY DISEASE
     Dosage: 2 G, TID
     Route: 048
  3. JUSO [Concomitant]
     Active Substance: SODIUM BICARBONATE
     Indication: CHRONIC KIDNEY DISEASE
     Dosage: 1000 MG, BID
     Route: 048
     Dates: start: 20200821
  4. ALFAROL [Concomitant]
     Active Substance: ALFACALCIDOL
     Indication: PRODUCT USED FOR UNKNOWN INDICATION
     Dosage: 0.25 UG, QD
     Route: 048
     Dates: start: 20210108, end: 20210430
  5. PRALIA [Suspect]
     Active Substance: DENOSUMAB
     Indication: OSTEOPOROSIS
     Dosage: 60 MG, ONCE EVERY 6 MO
     Route: 058
     Dates: start: 20210416, end: 20210416
  6. ZINC. [Concomitant]
     Active Substance: ZINC
     Dosage: 25 MG, BID
     Route: 048
     Dates: start: 20201030

REACTIONS (2)
  - Tetany [Recovering/Resolving]
  - Hypocalcaemia [Recovering/Resolving]

NARRATIVE: CASE EVENT DATE: 20210514
